FAERS Safety Report 8449891-8 (Version None)
Quarter: 2012Q2

REPORT INFORMATION
  Report Type: 
  Country: None (occurrence: None)
  Receive Date: 20120620
  Receipt Date: 20120613
  Transmission Date: 20120825
  Serious: Yes (Death, Life-Threatening)
  Sender: FDA-Public Use
  Company Number: FR-JNJFOC-20101001985

PATIENT
  Sex: Female

DRUGS (5)
  1. RISPERDAL [Suspect]
     Indication: PRODUCT USED FOR UNKNOWN INDICATION
     Route: 042
     Dates: start: 20100801, end: 20100813
  2. LORAZEPAM [Concomitant]
     Indication: PRODUCT USED FOR UNKNOWN INDICATION
     Route: 048
     Dates: start: 20100801
  3. GARDASIL [Concomitant]
     Indication: IMMUNISATION
     Dosage: INJECTABLE SUSPENSION. HUMAN PAPILLOMA VIRUS VACCINE  [TYPES 6, 11, 16, 18] (RECOMBINANT, ADSORBED)
     Route: 062
     Dates: start: 20081201, end: 20090401
  4. TERCIAN [Suspect]
     Indication: PRODUCT USED FOR UNKNOWN INDICATION
     Dosage: DOSE : 50 MG/ 5 ML
     Route: 042
     Dates: start: 20100801, end: 20100813
  5. CITALOPRAM [Suspect]
     Indication: PRODUCT USED FOR UNKNOWN INDICATION
     Route: 048
     Dates: start: 20090201, end: 20100813

REACTIONS (18)
  - MUTISM [None]
  - CARDIAC FAILURE [None]
  - HYPERTRIGLYCERIDAEMIA [None]
  - MULTI-ORGAN FAILURE [None]
  - ACUTE RESPIRATORY DISTRESS SYNDROME [None]
  - INCORRECT ROUTE OF DRUG ADMINISTRATION [None]
  - CYTOLYTIC HEPATITIS [None]
  - CLONUS [None]
  - ENCEPHALITIS AUTOIMMUNE [None]
  - GASTROINTESTINAL OBSTRUCTION [None]
  - HYPERKALAEMIA [None]
  - ENCEPHALITIS [None]
  - CONVULSION [None]
  - NEUROLEPTIC MALIGNANT SYNDROME [None]
  - STATUS EPILEPTICUS [None]
  - RENAL FAILURE ACUTE [None]
  - HEPATIC FAILURE [None]
  - SEPTIC SHOCK [None]
